FAERS Safety Report 6875795-8 (Version None)
Quarter: 2010Q3

REPORT INFORMATION
  Report Type: 
  Country: None (occurrence: None)
  Receive Date: 20100727
  Receipt Date: 20070919
  Transmission Date: 20110219
  Serious: Yes (Hospitalization, Other)
  Sender: FDA-Public Use
  Company Number: US-PFIZER INC-2006124179

PATIENT
  Sex: Female
  Weight: 95.3 kg

DRUGS (4)
  1. CELEBREX [Suspect]
     Indication: ARTHRITIS
     Dates: start: 20010302
  2. VIOXX [Suspect]
     Indication: ARTHRITIS
     Dates: start: 20000516
  3. ACETYLSALICYLIC ACID SRT [Concomitant]
     Dates: start: 19950301
  4. PREMPRO [Concomitant]
     Dates: start: 19870101, end: 20030101

REACTIONS (3)
  - ANXIETY [None]
  - DEPRESSION [None]
  - MYOCARDIAL INFARCTION [None]
